FAERS Safety Report 5930222-X (Version None)
Quarter: 2008Q4

REPORT INFORMATION
  Report Type: 
  Country: None (occurrence: None)
  Receive Date: 20081009
  Receipt Date: 20080327
  Transmission Date: 20090506
  Serious: Yes (Death)
  Sender: FDA-Public Use
  Company Number: PHEH2008US03075

PATIENT
  Age: 56 Year
  Sex: Female

DRUGS (6)
  1. ZOMETA [Suspect]
     Indication: METASTASES TO BONE
     Dosage: 4 MG, Q4WEEKS, INTRAVENOUS
     Route: 042
     Dates: start: 20071115, end: 20080207
  2. AROMASIN [Concomitant]
  3. LASIX [Concomitant]
  4. HYZAAR [Concomitant]
  5. MORPHINE [Concomitant]
  6. POTASSIUM (POTASSIUM) [Concomitant]

REACTIONS (1)
  - BREAST CANCER METASTATIC [None]
